FAERS Safety Report 5974750-X (Version None)
Quarter: 2008Q4

REPORT INFORMATION
  Report Type: 
  Country: None (occurrence: None)
  Receive Date: 20081201
  Receipt Date: 20081125
  Transmission Date: 20090506
  Serious: Yes (Death)
  Sender: FDA-Public Use
  Company Number: JP-PFIZER INC-2008100372

PATIENT
  Age: 69 Year
  Sex: Male

DRUGS (2)
  1. ZOLOFT [Suspect]
     Indication: DEPRESSION
     Dosage: DAILY DOSE:25MG
     Route: 048
     Dates: start: 20081001, end: 20081003
  2. DEPAS [Suspect]
     Indication: DEPRESSION
     Dosage: DAILY DOSE:3MG
     Route: 048
     Dates: start: 20081001, end: 20081003

REACTIONS (1)
  - COMPLETED SUICIDE [None]
